FAERS Safety Report 15699268 (Version 1)
Quarter: 2018Q4

REPORT INFORMATION
  Report Type: Spontaneous
  Country: US (occurrence: US)
  Receive Date: 20181207
  Receipt Date: 20181207
  Transmission Date: 20190205
  Serious: Yes (Other)
  Sender: FDA-Public Use
  Company Number: US-MYLANLABS-2018M1089787

PATIENT
  Age: 15 Year
  Sex: Male

DRUGS (8)
  1. TRAMADOL. [Suspect]
     Active Substance: TRAMADOL
     Indication: WITHDRAWAL SYNDROME
     Dosage: FOR THE FIRST FIVE DAYS
     Route: 048
     Dates: start: 20151201
  2. LOPERAMIDE [Interacting]
     Active Substance: LOPERAMIDE
     Dosage: 2 MILLIGRAM, QD
     Route: 048
     Dates: start: 201512
  3. CHLORPHENIRAMINE                   /00072501/ [Interacting]
     Active Substance: CHLORPHENIRAMINE
     Indication: PROPHYLAXIS AGAINST ALCOHOLIC WITHDRAWAL SYNDROME
     Dosage: 4 MILLIGRAM
     Route: 048
     Dates: start: 20151201
  4. TRAMADOL. [Interacting]
     Active Substance: TRAMADOL
     Indication: DETOXIFICATION
     Dosage: FOR THE FIRST FIVE DAYS
     Route: 042
     Dates: start: 20151201
  5. CLONIDINE. [Interacting]
     Active Substance: CLONIDINE
     Indication: AGITATION
     Dosage: THREE TIMES PER DAY
     Route: 048
     Dates: start: 20151201
  6. CLONIDINE. [Interacting]
     Active Substance: CLONIDINE
     Indication: HEART RATE ABNORMAL
  7. CLONAZEPAM. [Interacting]
     Active Substance: CLONAZEPAM
     Indication: INSOMNIA
     Dosage: 2 MILLIGRAM
     Route: 048
     Dates: start: 20151201
  8. LOPERAMIDE [Interacting]
     Active Substance: LOPERAMIDE
     Indication: PROPHYLAXIS AGAINST DIARRHOEA
     Dosage: INITIALLY
     Route: 048
     Dates: start: 20151201

REACTIONS (3)
  - Aggression [Unknown]
  - Drug interaction [Unknown]
  - Abnormal behaviour [Unknown]

NARRATIVE: CASE EVENT DATE: 20151204
